FAERS Safety Report 19634617 (Version 2)
Quarter: 2021Q3

REPORT INFORMATION
  Report Type: Spontaneous
  Country: US (occurrence: US)
  Receive Date: 20210730
  Receipt Date: 20210820
  Transmission Date: 20211014
  Serious: Yes (Other)
  Sender: FDA-Public Use
  Company Number: US-JNJFOC-20210755909

PATIENT
  Sex: Female

DRUGS (10)
  1. NEUTROGENA BEACH DEF WATER PLUS SUN PROT BR^D SPECT SPF 70 (AV\HOM\OCTI\OCTO\OX) [Suspect]
     Active Substance: AVOBENZONE\HOMOSALATE\OCTISALATE\OCTOCRYLENE\OXYBENZONE
     Indication: PROPHYLAXIS AGAINST SOLAR RADIATION
     Route: 061
  2. NEUTROGENA HYDROBOOST WATER GEL SUNSCREEN BROAD SPECTRUM SPF 30 [Suspect]
     Active Substance: AVOBENZONE\HOMOSALATE\OCTISALATE\OCTOCRYLENE
     Indication: PROPHYLAXIS AGAINST SOLAR RADIATION
     Dosage: HAD BEEN USING PRODUCT FOR YEARS.
     Route: 061
  3. NEUTROGENA COOLDRY SPORT SUNSCREEN BROAD SPECTRUM SPF 50 (AV\HOM\OCTI\OCTO) [Suspect]
     Active Substance: AVOBENZONE\HOMOSALATE\OCTISALATE\OCTOCRYLENE
     Indication: PROPHYLAXIS AGAINST SOLAR RADIATION
     Dosage: ANYTIME WHEN PATENT WAS OUT THERE SHE USED IT ON HER BACK
     Route: 061
     Dates: start: 20170808
  4. NEUTROGENA ULTRA SHEER BODY MIST SUNSCREEN BROAD SPECTRUM 70 (AVO\HOM\OCTI\OCTO) [Suspect]
     Active Substance: AVOBENZONE\HOMOSALATE\OCTISALATE\OCTOCRYLENE
     Indication: PROPHYLAXIS AGAINST SOLAR RADIATION
     Dosage: ANYTIME WHEN PATENT WAS OUT THERE SHE USED IT ON HER BACK
     Route: 061
     Dates: start: 20170801
  5. NEUTROGENA SHEER ZINC DRY?TOUCH SUNSCREEN BROAD SPECTRUM SPF50 [Suspect]
     Active Substance: ZINC OXIDE
     Indication: PROPHYLAXIS AGAINST SOLAR RADIATION
     Route: 061
  6. NEUTROGENA BEACH DEFENSE WATER PLUS SUN PROTECTION SUNSCREEN BROAD SPECTRUM SPF 50 [Suspect]
     Active Substance: AVOBENZONE\HOMOSALATE\OCTISALATE\OCTOCRYLENE
     Indication: PROPHYLAXIS AGAINST SOLAR RADIATION
     Dosage: ANYTIME WHEN PATENT WAS OUT THERE SHE USED IT ON HER BACK
     Route: 061
     Dates: start: 20170801
  7. NEUTROGENA BEACH DEFENSE WATER PLUS SUN PROTECTION SUNSCREEN BROAD SPECTRUM SPF 30 [Suspect]
     Active Substance: AVOBENZONE\HOMOSALATE\OCTISALATE\OCTOCRYLENE
     Indication: PROPHYLAXIS AGAINST SOLAR RADIATION
     Dosage: ANYTIME WHEN PATENT WAS OUT THERE SHE USED IT ON HER BACK
     Route: 061
     Dates: start: 20170801
  8. NEUTROGENA ULTRA SHEER BODY MIST SUNSCRN BR^D SPECT SPF 45 (AVO\HOM\OCTI\OCTO\OX) [Suspect]
     Active Substance: AVOBENZONE\HOMOSALATE\OCTISALATE\OCTOCRYLENE\OXYBENZONE
     Indication: PROPHYLAXIS AGAINST SOLAR RADIATION
     Dosage: ANYTIME WHEN PATENT WAS OUT THERE SHE USED IT ON HER BACK
     Route: 061
     Dates: start: 20170801
  9. NEUTROGENA AGE SHIELD FACE SPF 70 [Suspect]
     Active Substance: AVOBENZONE\HOMOSALATE\OCTISALATE\OCTOCRYLENE\OXYBENZONE
     Indication: PROPHYLAXIS AGAINST SOLAR RADIATION
     Dosage: HAD BEEN USING PRODUCT FOR MORE THAN 10 YEARS.
     Route: 061
  10. NEUTROGENA BEACH DEF WATER PLUS SUN PROTECT BR^D SPECT SPF 70 (AV\HOM\OCTI\OCTO) [Suspect]
     Active Substance: AVOBENZONE\HOMOSALATE\OCTISALATE\OCTOCRYLENE
     Indication: PROPHYLAXIS AGAINST SOLAR RADIATION
     Route: 061

REACTIONS (1)
  - Basal cell carcinoma [Unknown]
